FAERS Safety Report 4914618-0 (Version None)
Quarter: 2006Q1

REPORT INFORMATION
  Report Type: 
  Country: None (occurrence: None)
  Receive Date: 20060216
  Receipt Date: 20050420
  Transmission Date: 20060701
  Serious: Yes (Hospitalization, Disabling)
  Sender: FDA-Public Use
  Company Number: US-MERCK-0504USA03940

PATIENT
  Age: 56 Year
  Sex: Male
  Weight: 114 kg

DRUGS (5)
  1. VIOXX [Suspect]
     Indication: OSTEOARTHRITIS
     Route: 048
     Dates: start: 19991101, end: 20001201
  2. CARDIZEM CD [Concomitant]
     Route: 065
  3. MAXZIDE [Concomitant]
     Route: 065
  4. MAXZIDE [Concomitant]
     Route: 065
  5. LIPITOR [Concomitant]
     Route: 065

REACTIONS (11)
  - CARDIAC DISORDER [None]
  - COLON ADENOMA [None]
  - COLONIC POLYP [None]
  - CORONARY ARTERY DISEASE [None]
  - DYSPNOEA EXERTIONAL [None]
  - GASTROINTESTINAL DISORDER [None]
  - INTESTINAL OBSTRUCTION [None]
  - MYOCARDIAL INFARCTION [None]
  - MYOSITIS [None]
  - SENSATION OF HEAVINESS [None]
  - VENTRICULAR FIBRILLATION [None]
